FAERS Safety Report 10268457 (Version 2)
Quarter: 2014Q2

REPORT INFORMATION
  Report Type: Spontaneous
  Country: JP (occurrence: JP)
  Receive Date: 20140630
  Receipt Date: 20140630
  Transmission Date: 20141212
  Serious: Yes (Death, Hospitalization)
  Sender: FDA-Public Use
  Company Number: JP-ELI_LILLY_AND_COMPANY-JP201404008279

PATIENT
  Age: 77 Year
  Sex: Male
  Weight: 63 kg

DRUGS (4)
  1. ALIMTA [Suspect]
     Indication: PLEURAL MESOTHELIOMA MALIGNANT
     Dosage: 300 MG, OTHER
     Route: 042
     Dates: start: 20130122, end: 20140218
  2. CARBOPLATIN [Suspect]
     Indication: PLEURAL MESOTHELIOMA MALIGNANT
     Dosage: 440 MG, OTHER
     Route: 042
     Dates: start: 20130122, end: 20140128
  3. PANVITAN [Concomitant]
     Indication: PROPHYLAXIS
     Dosage: 1 G, UNK
     Dates: start: 20130116, end: 20140318
  4. METHYCOBAL [Concomitant]
     Indication: PROPHYLAXIS
     Dosage: 1500 UNK, UNK
     Route: 030
     Dates: start: 20130118, end: 20131203

REACTIONS (2)
  - Pleural mesothelioma malignant [Fatal]
  - Interstitial lung disease [Fatal]
